FAERS Safety Report 5134433-5 (Version None)
Quarter: 2006Q4

REPORT INFORMATION
  Report Type: 
  Country: None (occurrence: None)
  Receive Date: 20061019
  Receipt Date: 20061013
  Transmission Date: 20070319
  Serious: Yes (Death, Other)
  Sender: FDA-Public Use
  Company Number: 163-21880-06060114

PATIENT
  Age: 81 Year
  Sex: Male

DRUGS (1)
  1. REVLIMID [Suspect]
     Indication: MYELODYSPLASTIC SYNDROME
     Dosage: 5 MG, 1 IN 1 D, ORAL
     Route: 048
     Dates: start: 20060501, end: 20060718

REACTIONS (8)
  - ACUTE LEUKAEMIA [None]
  - ASTHENIA [None]
  - DEAFNESS [None]
  - DYSPNOEA [None]
  - GENERAL PHYSICAL HEALTH DETERIORATION [None]
  - JOINT SWELLING [None]
  - NEUROPATHY PERIPHERAL [None]
  - SKIN LESION [None]
